FAERS Safety Report 23791736 (Version 2)
Quarter: 2024Q2

REPORT INFORMATION
  Report Type: Spontaneous
  Country: CA (occurrence: CA)
  Receive Date: 20240429
  Receipt Date: 20240528
  Transmission Date: 20240716
  Serious: Yes (Life-Threatening, Hospitalization, Other)
  Sender: FDA-Public Use
  Company Number: CA-AstraZeneca-2024A096044

PATIENT
  Age: 47 Year
  Sex: Female
  Weight: 68 kg

DRUGS (1)
  1. TRASTUZUMAB DERUXTECAN [Suspect]
     Active Substance: TRASTUZUMAB DERUXTECAN
     Indication: Breast cancer metastatic
     Dosage: 409 MG, 56 H
     Route: 042

REACTIONS (6)
  - Blood lactic acid increased [Recovering/Resolving]
  - Hypotension [Unknown]
  - Renal failure [Unknown]
  - Septic shock [Unknown]
  - Urosepsis [Unknown]
  - Heart rate increased [Unknown]
